FAERS Safety Report 5331040-6 (Version None)
Quarter: 2007Q2

REPORT INFORMATION
  Report Type: 
  Country: None (occurrence: None)
  Receive Date: 20070522
  Receipt Date: 20070517
  Transmission Date: 20071010
  Serious: Yes (Death)
  Sender: FDA-Public Use
  Company Number: A0651997A

PATIENT
  Sex: Female

DRUGS (2)
  1. TYKERB [Suspect]
     Dates: start: 20070101
  2. HERCEPTIN [Suspect]
     Dates: start: 20070101

REACTIONS (1)
  - DEATH [None]
